FAERS Safety Report 7041397-6 (Version None)
Quarter: 2010Q4

REPORT INFORMATION
  Report Type: 
  Country: None (occurrence: None)
  Receive Date: 20101013
  Receipt Date: 20101005
  Transmission Date: 20110411
  Serious: Yes (Hospitalization)
  Sender: FDA-Public Use
  Company Number: US-SANOFI-AVENTIS-2010SA061259

PATIENT
  Age: 18 Year
  Sex: Female

DRUGS (2)
  1. LANTUS [Suspect]
     Dosage: IN AM DOSE:70 UNIT(S)
     Route: 058
  2. SOLOSTAR [Suspect]

REACTIONS (1)
  - DIABETIC KETOACIDOSIS [None]
